FAERS Safety Report 20746015 (Version 3)
Quarter: 2022Q2

REPORT INFORMATION
  Report Type: Report from Study
  Country: US (occurrence: US)
  Receive Date: 20220425
  Receipt Date: 20220531
  Transmission Date: 20220721
  Serious: Yes (Other)
  Sender: FDA-Public Use
  Company Number: US-UCBSA-2022022645

PATIENT
  Age: 62 Year
  Sex: Female

DRUGS (1)
  1. CERTOLIZUMAB PEGOL [Suspect]
     Active Substance: CERTOLIZUMAB PEGOL
     Indication: Rheumatoid arthritis
     Dosage: 400 MILLIGRAM, EV 4 WEEKS
     Route: 058
     Dates: start: 20220211, end: 20220408

REACTIONS (8)
  - Perineal abscess [Not Recovered/Not Resolved]
  - Lymphadenitis fungal [Recovering/Resolving]
  - Fungal skin infection [Recovering/Resolving]
  - Eczema [Recovering/Resolving]
  - Dry skin [Not Recovered/Not Resolved]
  - Oral candidiasis [Recovering/Resolving]
  - Psoriasis [Recovering/Resolving]
  - Stomatitis [Not Recovered/Not Resolved]

NARRATIVE: CASE EVENT DATE: 20220211
